FAERS Safety Report 4867521-9 (Version None)
Quarter: 2005Q4

REPORT INFORMATION
  Report Type: 
  Country: None (occurrence: None)
  Receive Date: 20051222
  Receipt Date: 20051219
  Transmission Date: 20060501
  Serious: Yes (Other)
  Sender: FDA-Public Use
  Company Number: HQWYE928907OCT05

PATIENT
  Age: 19 Year
  Sex: Male
  Weight: 85.4 kg

DRUGS (4)
  1. RAPAMUNE [Suspect]
     Indication: RENAL TRANSPLANT
     Dosage: UNSPECIFIED, ORAL
     Route: 048
     Dates: start: 20050919, end: 20050926
  2. RAPAMUNE [Suspect]
     Indication: RENAL TRANSPLANT
     Dosage: UNSPECIFIED, ORAL
     Route: 048
     Dates: start: 20050927
  3. SEPTRA [Suspect]
     Dosage: UNSPECIFIED
  4. CELLCEPT [Concomitant]

REACTIONS (2)
  - GRANULOMA [None]
  - NEPHRITIS INTERSTITIAL [None]
